FAERS Safety Report 21779761 (Version 15)
Quarter: 2025Q3

REPORT INFORMATION
  Report Type: Report from Study
  Country: US (occurrence: US)
  Receive Date: 20221226
  Receipt Date: 20250908
  Transmission Date: 20251021
  Serious: Yes (Other)
  Sender: JAZZ
  Company Number: US-JAZZ-2022-US-021135

PATIENT
  Sex: Female

DRUGS (17)
  1. XYWAV [Suspect]
     Active Substance: CALCIUM OXYBATE\MAGNESIUM OXYBATE\POTASSIUM OXYBATE\SODIUM OXYBATE
     Indication: Hypersomnia
     Dosage: 3.75 GRAM, BID
  2. XYWAV [Suspect]
     Active Substance: CALCIUM OXYBATE\MAGNESIUM OXYBATE\POTASSIUM OXYBATE\SODIUM OXYBATE
     Dosage: 3 GRAM, BID
  3. XYWAV [Suspect]
     Active Substance: CALCIUM OXYBATE\MAGNESIUM OXYBATE\POTASSIUM OXYBATE\SODIUM OXYBATE
     Dosage: 2.5 GRAM, BID
  4. XYWAV [Suspect]
     Active Substance: CALCIUM OXYBATE\MAGNESIUM OXYBATE\POTASSIUM OXYBATE\SODIUM OXYBATE
  5. XYWAV [Suspect]
     Active Substance: CALCIUM OXYBATE\MAGNESIUM OXYBATE\POTASSIUM OXYBATE\SODIUM OXYBATE
     Dosage: 4.5 GRAM, BID
  6. XYWAV [Suspect]
     Active Substance: CALCIUM OXYBATE\MAGNESIUM OXYBATE\POTASSIUM OXYBATE\SODIUM OXYBATE
     Dosage: 4.5 GRAM, TID
  7. INGREZZA [Suspect]
     Active Substance: VALBENAZINE DITOSYLATE
     Indication: Product used for unknown indication
  8. ARIPIPRAZOLE [Suspect]
     Active Substance: ARIPIPRAZOLE
     Indication: Product used for unknown indication
  9. DULOXETINE [Suspect]
     Active Substance: DULOXETINE
     Indication: Product used for unknown indication
  10. DULOXETINE [Suspect]
     Active Substance: DULOXETINE
  11. SINEMET [Suspect]
     Active Substance: CARBIDOPA\LEVODOPA
     Indication: Product used for unknown indication
  12. FLOMAX [Concomitant]
     Active Substance: TAMSULOSIN HYDROCHLORIDE
     Indication: Product used for unknown indication
     Dosage: 0.4 MILLIGRAM, QD
     Dates: start: 20221212
  13. METFORMIN HYDROCHLORIDE [Concomitant]
     Active Substance: METFORMIN HYDROCHLORIDE
     Indication: Product used for unknown indication
  14. CIPROFLOXACIN HYDROCHLORIDE [Concomitant]
     Active Substance: CIPROFLOXACIN HYDROCHLORIDE
     Indication: Product used for unknown indication
  15. VITAMIN C [Concomitant]
     Active Substance: ASCORBIC ACID
     Indication: Product used for unknown indication
  16. TETRABENAZINE [Concomitant]
     Active Substance: TETRABENAZINE
     Indication: Product used for unknown indication
  17. AUSTEDO [Concomitant]
     Active Substance: DEUTETRABENAZINE
     Indication: Product used for unknown indication

REACTIONS (22)
  - Nephrolithiasis [Unknown]
  - Kidney infection [Unknown]
  - Cardiac failure congestive [Unknown]
  - Neuropathy peripheral [Unknown]
  - Urinary tract infection [Unknown]
  - Neoplasm malignant [Unknown]
  - Neurological symptom [Unknown]
  - Hepatic steatosis [Unknown]
  - Sinus disorder [Unknown]
  - Mouth ulceration [Unknown]
  - Hypotension [Unknown]
  - Fall [Unknown]
  - Drug hypersensitivity [Unknown]
  - Fibromyalgia [Unknown]
  - Gait disturbance [Recovering/Resolving]
  - Gait disturbance [Unknown]
  - Tremor [Unknown]
  - Drug effect less than expected [Unknown]
  - Product administration interrupted [Unknown]
  - Incorrect dose administered [Unknown]
  - Intentional product use issue [Unknown]
  - Off label use [Unknown]
